FAERS Safety Report 10372057 (Version 1)
Quarter: 2014Q3

REPORT INFORMATION
  Report Type: Spontaneous
  Country: CH (occurrence: CH)
  Receive Date: 20140808
  Receipt Date: 20140808
  Transmission Date: 20150326
  Serious: Yes (Other)
  Sender: FDA-Public Use
  Company Number: CH-GE HEALTHCARE MEDICAL DIAGNOSTICS-OMPQ-PR-1408S-0858

PATIENT
  Age: 82 Year
  Sex: Female

DRUGS (2)
  1. ACCUPAQUE [Suspect]
     Active Substance: IOHEXOL
     Indication: PNEUMOTHORAX
     Route: 042
     Dates: start: 20140611, end: 20140611
  2. ACCUPAQUE [Suspect]
     Active Substance: IOHEXOL
     Indication: DIAGNOSTIC PROCEDURE

REACTIONS (3)
  - Vessel puncture site haematoma [Recovered/Resolved]
  - Injection site extravasation [Recovered/Resolved]
  - Puncture site oedema [Recovered/Resolved]

NARRATIVE: CASE EVENT DATE: 20140611
